FAERS Safety Report 7054521-6 (Version None)
Quarter: 2010Q4

REPORT INFORMATION
  Report Type: 
  Country: None (occurrence: None)
  Receive Date: 20101020
  Receipt Date: 20101007
  Transmission Date: 20110411
  Serious: Yes (Hospitalization, Other)
  Sender: FDA-Public Use
  Company Number: PHFR2010GB04609

PATIENT
  Age: 67 Year
  Sex: Female
  Weight: 62.75 kg

DRUGS (3)
  1. LETROZOLE [Suspect]
     Dosage: UNK
     Route: 048
     Dates: start: 20100920
  2. LISINOPRIL [Concomitant]
  3. PYRIDOSTIGMINE BROMIDE [Concomitant]
     Indication: MYASTHENIA GRAVIS
     Dosage: 90 MG, TID
     Route: 065

REACTIONS (5)
  - CONDITION AGGRAVATED [None]
  - DYSARTHRIA [None]
  - DYSPHAGIA [None]
  - GASTROINTESTINAL TUBE INSERTION [None]
  - MYASTHENIA GRAVIS [None]
